FAERS Safety Report 15802072 (Version 1)
Quarter: 2019Q1

REPORT INFORMATION
  Report Type: Spontaneous
  Country: TW (occurrence: TW)
  Receive Date: 20190109
  Receipt Date: 20190109
  Transmission Date: 20190417
  Serious: Yes (Death, Hospitalization)
  Sender: FDA-Public Use
  Company Number: PHHY2019TW001524

PATIENT
  Age: 88 Year
  Sex: Female

DRUGS (2)
  1. AMIODARONE [Suspect]
     Active Substance: AMIODARONE
     Dosage: 400 MG, QD (FOR 3 MONTHS)
  2. AMIODARONE [Suspect]
     Active Substance: AMIODARONE
     Indication: ATRIAL FLUTTER
     Dosage: 600 MG, QD (FOR 2 MONTHS)
     Route: 065

REACTIONS (3)
  - Pulmonary toxicity [Fatal]
  - Drug-induced liver injury [Fatal]
  - Cholecystitis acute [Fatal]
